FAERS Safety Report 14870389 (Version 2)
Quarter: 2018Q2

REPORT INFORMATION
  Report Type: Report from Study
  Country: CA (occurrence: CA)
  Receive Date: 20180509
  Receipt Date: 20180611
  Transmission Date: 20180711
  Serious: Yes (Hospitalization)
  Sender: FDA-Public Use
  Company Number: CA-HLSUS-2018-CA-000714

PATIENT
  Age: 39 Year
  Sex: Male
  Weight: 91.5 kg

DRUGS (1)
  1. CLOZARIL [Suspect]
     Active Substance: CLOZAPINE
     Indication: SCHIZOPHRENIA
     Dosage: 200MG BID
     Route: 048
     Dates: start: 20130418, end: 20180428

REACTIONS (5)
  - Hyperthermia [Unknown]
  - Leukocytosis [Unknown]
  - Malaise [Unknown]
  - Pulmonary embolism [Unknown]
  - Schizophrenia [Unknown]

NARRATIVE: CASE EVENT DATE: 20180427
